FAERS Safety Report 6707456-X (Version None)
Quarter: 2010Q2

REPORT INFORMATION
  Report Type: 
  Country: None (occurrence: None)
  Receive Date: 20100503
  Receipt Date: 20090414
  Transmission Date: 20101027
  Serious: No
  Sender: FDA-Public Use
  Company Number: US-ASTRAZENECA-2009UW06384

PATIENT
  Sex: Female
  Weight: 48.1 kg

DRUGS (4)
  1. NEXIUM [Suspect]
     Indication: GASTROINTESTINAL DISORDER
     Route: 048
     Dates: start: 20020101, end: 20080901
  2. NEXIUM [Suspect]
     Route: 048
     Dates: start: 20080901
  3. SENOKOT [Concomitant]
     Indication: FAECES HARD
  4. OXYCONTIN [Concomitant]
     Indication: PAIN

REACTIONS (3)
  - HEADACHE [None]
  - INTERVERTEBRAL DISC PROTRUSION [None]
  - OSTEOPOROSIS [None]
